FAERS Safety Report 21674412 (Version 2)
Quarter: 2023Q2

REPORT INFORMATION
  Report Type: Report from Study
  Country: US (occurrence: US)
  Receive Date: 20221202
  Receipt Date: 20230408
  Transmission Date: 20230721
  Serious: No
  Sender: FDA-Public Use
  Company Number: US-002147023-NVSC2022US280019

PATIENT
  Sex: Female

DRUGS (1)
  1. COSENTYX [Suspect]
     Active Substance: SECUKINUMAB
     Indication: Ankylosing spondylitis
     Dosage: 150 MG, QMO
     Route: 058

REACTIONS (8)
  - Skin infection [Unknown]
  - Erythema [Unknown]
  - Scratch [Unknown]
  - Arthralgia [Unknown]
  - Blood iron decreased [Unknown]
  - Fatigue [Unknown]
  - Inflammation [Unknown]
  - Upper respiratory tract infection [Unknown]
